FAERS Safety Report 4892680-1 (Version None)
Quarter: 2006Q1

REPORT INFORMATION
  Report Type: 
  Country: None (occurrence: None)
  Receive Date: 20060125
  Receipt Date: 20060125
  Transmission Date: 20060701
  Serious: Yes (Hospitalization)
  Sender: FDA-Public Use
  Company Number: None

PATIENT
  Age: 25 Year
  Sex: Male

DRUGS (1)
  1. IBUPROFEN [Suspect]
     Indication: HEADACHE
     Dosage: 600MG PO DAILY
     Route: 048

REACTIONS (6)
  - ABDOMINAL PAIN [None]
  - DYSPNOEA [None]
  - GASTRIC ULCER [None]
  - HAEMOGLOBIN DECREASED [None]
  - MELAENA [None]
  - OCCULT BLOOD POSITIVE [None]
